FAERS Safety Report 13100486 (Version 1)
Quarter: 2017Q1

REPORT INFORMATION
  Report Type: Spontaneous
  Country: US (occurrence: US)
  Receive Date: 20170109
  Receipt Date: 20170109
  Transmission Date: 20170428
  Serious: Yes (Hospitalization)
  Sender: FDA-Public Use
  Company Number: None

PATIENT
  Age: 85 Year
  Sex: Male

DRUGS (12)
  1. XANAX [Concomitant]
     Active Substance: ALPRAZOLAM
  2. ZYTIGA [Suspect]
     Active Substance: ABIRATERONE ACETATE
     Indication: ABDOMINAL PAIN
     Route: 048
  3. NORCO [Concomitant]
     Active Substance: ACETAMINOPHEN\HYDROCODONE BITARTRATE
  4. FUROSEMIDE. [Concomitant]
     Active Substance: FUROSEMIDE
  5. METOPROLOL. [Concomitant]
     Active Substance: METOPROLOL
  6. ZYTIGA [Suspect]
     Active Substance: ABIRATERONE ACETATE
     Indication: PROSTATE CANCER
     Route: 048
  7. ZYTIGA [Suspect]
     Active Substance: ABIRATERONE ACETATE
     Indication: ANXIETY DISORDER
     Route: 048
  8. WARFARIN [Concomitant]
     Active Substance: WARFARIN
  9. ZYTIGA [Suspect]
     Active Substance: ABIRATERONE ACETATE
     Indication: ESSENTIAL HYPERTENSION
     Route: 048
  10. ZYTIGA [Suspect]
     Active Substance: ABIRATERONE ACETATE
     Indication: GOUT
     Route: 048
  11. ULORIC [Concomitant]
     Active Substance: FEBUXOSTAT
  12. PREDNISONE. [Concomitant]
     Active Substance: PREDNISONE

REACTIONS (1)
  - Heart rate increased [None]

NARRATIVE: CASE EVENT DATE: 20170106
